FAERS Safety Report 24675753 (Version 1)
Quarter: 2024Q4

REPORT INFORMATION
  Report Type: Spontaneous
  Country: ES (occurrence: ES)
  Receive Date: 20241128
  Receipt Date: 20241128
  Transmission Date: 20250115
  Serious: Yes (Other)
  Sender: PFIZER
  Company Number: None

PATIENT
  Age: 72 Year
  Sex: Male

DRUGS (2)
  1. VORICONAZOLE [Interacting]
     Active Substance: VORICONAZOLE
     Indication: Aspergillus infection
     Dosage: 100 MG, 2X/DAY, EACH 12H
     Route: 042
     Dates: start: 20240327
  2. METAMIZOLE [Interacting]
     Active Substance: METAMIZOLE
     Indication: Back pain
     Dosage: 2 G, 3X/DAY, EACH 8H
     Route: 042
     Dates: start: 20240407, end: 20240411

REACTIONS (1)
  - Drug interaction [Recovered/Resolved]

NARRATIVE: CASE EVENT DATE: 20240408
